FAERS Safety Report 7488325-7 (Version None)
Quarter: 2011Q2

REPORT INFORMATION
  Report Type: 
  Country: None (occurrence: None)
  Receive Date: 20110518
  Receipt Date: 20110505
  Transmission Date: 20111010
  Serious: Yes (Hospitalization, Other)
  Sender: FDA-Public Use
  Company Number: CA-ELI_LILLY_AND_COMPANY-CA201105001364

PATIENT
  Sex: Male
  Weight: 124.3 kg

DRUGS (9)
  1. ZYPREXA [Suspect]
     Indication: BIPOLAR I DISORDER
     Dosage: 7.5 MG, QD
  2. SEROQUEL [Concomitant]
  3. CLONAZEPAM [Concomitant]
  4. ZYPREXA [Suspect]
     Dosage: 2.5 MG, QD
  5. HALDOL [Concomitant]
  6. RISPERIDONE [Concomitant]
  7. LITHIUM CARBONATE [Concomitant]
  8. BENZTROPINE MESYLATE [Concomitant]
  9. TOPAMAX [Concomitant]

REACTIONS (5)
  - DIABETES WITH HYPEROSMOLARITY [None]
  - RHABDOMYOLYSIS [None]
  - BLOOD TRIGLYCERIDES INCREASED [None]
  - WEIGHT INCREASED [None]
  - HEPATIC ENZYME ABNORMAL [None]
